FAERS Safety Report 5125843-0 (Version None)
Quarter: 2006Q4

REPORT INFORMATION
  Report Type: 
  Country: None (occurrence: None)
  Receive Date: 20061012
  Receipt Date: 20060928
  Transmission Date: 20070319
  Serious: Yes (Other)
  Sender: FDA-Public Use
  Company Number: PHEH2006US12315

PATIENT
  Age: 88 Year
  Sex: Female

DRUGS (6)
  1. EXJADE [Suspect]
     Dosage: 1250 MG, QD
     Route: 048
     Dates: start: 20060918
  2. DIOVAN [Concomitant]
     Dosage: 160 UNK, UNK
  3. PREDNISONE [Concomitant]
  4. FOLIC ACID [Concomitant]
  5. COUMADIN [Concomitant]
  6. SYNTHROID [Concomitant]

REACTIONS (5)
  - COUGH [None]
  - DYSARTHRIA [None]
  - EYE PAIN [None]
  - VISUAL DISTURBANCE [None]
  - VOMITING [None]
